FAERS Safety Report 7541661-8 (Version None)
Quarter: 2011Q2

REPORT INFORMATION
  Report Type: 
  Country: None (occurrence: None)
  Receive Date: 20110613
  Receipt Date: 20110531
  Transmission Date: 20111010
  Serious: Yes (Hospitalization)
  Sender: FDA-Public Use
  Company Number: UA-JNJFOC-20110600858

PATIENT

DRUGS (6)
  1. METHOTREXATE [Suspect]
     Indication: RHEUMATOID ARTHRITIS
     Route: 048
     Dates: start: 20060906
  2. FOLIC ACID [Concomitant]
     Route: 048
     Dates: start: 20060908
  3. GOLIMUMAB [Suspect]
     Route: 058
     Dates: start: 20110411
  4. CALCIUM/D3 [Concomitant]
     Indication: ILL-DEFINED DISORDER
     Dates: start: 20081029
  5. BIVALOS [Concomitant]
     Indication: ILL-DEFINED DISORDER
     Route: 048
     Dates: start: 20081029
  6. GOLIMUMAB [Suspect]
     Indication: RHEUMATOID ARTHRITIS
     Route: 058
     Dates: start: 20060901

REACTIONS (1)
  - HERPES ZOSTER [None]
